FAERS Safety Report 5952634-0 (Version None)
Quarter: 2008Q4

REPORT INFORMATION
  Report Type: 
  Country: None (occurrence: None)
  Receive Date: 20081028
  Receipt Date: 20080725
  Transmission Date: 20090506
  Serious: Yes (Other)
  Sender: FDA-Public Use
  Company Number: 166563USA

PATIENT
  Sex: Female

DRUGS (1)
  1. PERGOLIDE MESYLATE [Suspect]
     Indication: RESTLESS LEGS SYNDROME
     Dates: start: 20030201, end: 20070301

REACTIONS (1)
  - CARDIAC VALVE DISEASE [None]
